FAERS Safety Report 20062083 (Version 2)
Quarter: 2021Q4

REPORT INFORMATION
  Report Type: Spontaneous
  Country: PL (occurrence: PL)
  Receive Date: 20211112
  Receipt Date: 20211115
  Transmission Date: 20220303
  Serious: Yes (Other)
  Sender: FDA-Public Use
  Company Number: PL-CELGENE-POL-20211101459

PATIENT
  Age: 8 Year
  Sex: Female

DRUGS (1)
  1. AZACITIDINE [Suspect]
     Active Substance: AZACITIDINE
     Indication: Myelodysplastic syndrome
     Route: 065

REACTIONS (2)
  - Septic shock [Unknown]
  - Acute respiratory distress syndrome [Unknown]
